FAERS Safety Report 4503513-7 (Version None)
Quarter: 2004Q4

REPORT INFORMATION
  Report Type: 
  Country: None (occurrence: None)
  Receive Date: 20041115
  Receipt Date: 20041101
  Transmission Date: 20050328
  Serious: Yes (Hospitalization)
  Sender: FDA-Public Use
  Company Number: 2004085887

PATIENT
  Age: 62 Year
  Sex: Male

DRUGS (1)
  1. MINOXIDIL [Suspect]
     Indication: MALE PATTERN BALDNESS
     Dosage: 1 ML, 2X, TOPICAL
     Route: 061
     Dates: start: 20001201

REACTIONS (1)
  - MENINGITIS VIRAL [None]
